FAERS Safety Report 6128764-X (Version None)
Quarter: 2009Q1

REPORT INFORMATION
  Report Type: 
  Country: None (occurrence: None)
  Receive Date: 20090323
  Receipt Date: 20090319
  Transmission Date: 20090719
  Serious: Yes (Hospitalization)
  Sender: FDA-Public Use
  Company Number: FR-GILEAD-2009-0020956

PATIENT
  Sex: Male

DRUGS (3)
  1. TRUVADA [Suspect]
     Indication: HIV INFECTION
     Route: 048
     Dates: start: 20080701
  2. BACTRIM DS [Suspect]
     Route: 048
     Dates: start: 20080701
  3. SUSTIVA [Suspect]
     Indication: HIV INFECTION
     Route: 048
     Dates: start: 20080701

REACTIONS (3)
  - PRURIGO [None]
  - PRURITUS [None]
  - RASH PAPULAR [None]
